FAERS Safety Report 4361530-4 (Version None)
Quarter: 2004Q2

REPORT INFORMATION
  Report Type: 
  Country: None (occurrence: None)
  Receive Date: 20040521
  Receipt Date: 20040305
  Transmission Date: 20050107
  Serious: No
  Sender: FDA-Public Use
  Company Number: US-GLAXOSMITHKLINE-A0501412A

PATIENT
  Age: 46 Year
  Sex: Male

DRUGS (8)
  1. ZYBAN [Suspect]
     Dosage: 150MG TWICE PER DAY
     Route: 048
     Dates: start: 20040301, end: 20040305
  2. GLUCOSAMINE + CHONDROITIN [Suspect]
     Indication: DRUG USE FOR UNKNOWN INDICATION
     Dosage: 1TAB PER DAY
     Dates: start: 20040201, end: 20040305
  3. MULTI-VITAMIN [Concomitant]
  4. CALCIUM SUPPLEMENT [Concomitant]
  5. VITAMIN C [Concomitant]
  6. BENICAR [Concomitant]
  7. MAGNESIUM SUPPLEMENT [Concomitant]
  8. ZINC SUPPLEMENT [Concomitant]

REACTIONS (2)
  - PRURITUS [None]
  - URTICARIA [None]
